FAERS Safety Report 11813112 (Version 10)
Quarter: 2017Q4

REPORT INFORMATION
  Report Type: Report from Study
  Country: US (occurrence: US)
  Receive Date: 20151209
  Receipt Date: 20171011
  Transmission Date: 20180320
  Serious: Yes (Hospitalization, Other)
  Sender: FDA-Public Use
  Company Number: US-ROCHE-1674308

PATIENT
  Age: 68 Year
  Sex: Male
  Weight: 72.64 kg

DRUGS (21)
  1. POTASSIUM CITRATE. [Concomitant]
     Active Substance: POTASSIUM CITRATE
  2. ESBRIET [Suspect]
     Active Substance: PIRFENIDONE
     Dosage: 3 CAPSULES THRICE DAILY
     Route: 048
     Dates: start: 20150706, end: 20170915
  3. PREDNISONE. [Concomitant]
     Active Substance: PREDNISONE
     Indication: PNEUMONIA
     Route: 048
  4. SYNTHROID [Concomitant]
     Active Substance: LEVOTHYROXINE SODIUM
     Dosage: ONGOING: YES
     Route: 065
  5. DILTIAZEM. [Concomitant]
     Active Substance: DILTIAZEM
     Indication: ATRIAL FIBRILLATION
     Route: 048
     Dates: start: 20170920
  6. LISINOPRIL. [Concomitant]
     Active Substance: LISINOPRIL
     Indication: HYPERTENSION
     Route: 048
  7. LISINOPRIL. [Concomitant]
     Active Substance: LISINOPRIL
     Dosage: ONGOING: YES
     Route: 065
  8. OXYGEN. [Concomitant]
     Active Substance: OXYGEN
     Indication: DYSPNOEA
     Dosage: HOME OXYGEN; ONGOING : YES
     Route: 055
  9. ESBRIET [Suspect]
     Active Substance: PIRFENIDONE
     Indication: IDIOPATHIC PULMONARY FIBROSIS
     Dosage: ONGOING: UNKNOWN
     Route: 048
     Dates: start: 20150517
  10. DRONABINOL. [Concomitant]
     Active Substance: DRONABINOL
     Indication: INCREASED APPETITE
     Route: 065
     Dates: start: 2016
  11. LEVAQUIN [Concomitant]
     Active Substance: LEVOFLOXACIN
     Indication: PNEUMONIA
     Route: 065
     Dates: start: 201709
  12. LISINOPRIL. [Concomitant]
     Active Substance: LISINOPRIL
     Dosage: ONGOING: YES
     Route: 065
     Dates: start: 2016, end: 201708
  13. METOPROLOL. [Concomitant]
     Active Substance: METOPROLOL
  14. DRONABINOL. [Concomitant]
     Active Substance: DRONABINOL
     Dosage: 1 TABLET BID
     Route: 065
  15. ELIQUIS [Concomitant]
     Active Substance: APIXABAN
     Route: 065
     Dates: start: 20170920
  16. FEXOFENADINE HYDROCHLORIDE/PSEUDOEPHEDRINE HYDROCHLORIDE [Concomitant]
     Active Substance: FEXOFENADINE HYDROCHLORIDE\PSEUDOEPHEDRINE HYDROCHLORIDE
     Dosage: 1 PO BID PM SINUS CONGESTION
     Route: 048
  17. ESBRIET [Suspect]
     Active Substance: PIRFENIDONE
     Dosage: 3 CAPSULES THRICE DAILY
     Route: 048
     Dates: start: 20150401
  18. ELIQUIS [Concomitant]
     Active Substance: APIXABAN
     Route: 065
  19. SYNTHROID [Concomitant]
     Active Substance: LEVOTHYROXINE SODIUM
     Indication: HYPOTHYROIDISM
     Dosage: ONGOING: YES
     Route: 065
  20. PREDNISONE. [Concomitant]
     Active Substance: PREDNISONE
     Route: 065
     Dates: start: 201709
  21. BABY ASPIRIN [Concomitant]
     Active Substance: ASPIRIN
     Route: 048
     Dates: start: 201702, end: 20170916

REACTIONS (19)
  - Thrombosis [Unknown]
  - Decreased appetite [Recovering/Resolving]
  - Cough [Unknown]
  - Weight decreased [Unknown]
  - Liver scan abnormal [Unknown]
  - Atrial fibrillation [Not Recovered/Not Resolved]
  - Dyspnoea [Recovered/Resolved]
  - Pneumonia [Recovered/Resolved]
  - Dyspnoea [Not Recovered/Not Resolved]
  - Weight decreased [Unknown]
  - Body height decreased [Not Recovered/Not Resolved]
  - Asthenia [Not Recovered/Not Resolved]
  - Asthenia [Not Recovered/Not Resolved]
  - Arrhythmia [Unknown]
  - Hernia [Unknown]
  - Cough [Not Recovered/Not Resolved]
  - Pneumonia [Not Recovered/Not Resolved]
  - Lymphadenopathy mediastinal [Unknown]
  - Ill-defined disorder [Not Recovered/Not Resolved]

NARRATIVE: CASE EVENT DATE: 201504
